FAERS Safety Report 5538323-5 (Version None)
Quarter: 2007Q4

REPORT INFORMATION
  Report Type: 
  Country: None (occurrence: None)
  Receive Date: 20071205
  Receipt Date: 20071127
  Transmission Date: 20080405
  Serious: Yes (Other)
  Sender: FDA-Public Use
  Company Number: 2007FS0197

PATIENT
  Age: 38 Year
  Sex: Female

DRUGS (1)
  1. NITROFURANTOIN [Suspect]

REACTIONS (9)
  - ANOSMIA [None]
  - MUSCLE SPASMS [None]
  - MYOCLONUS [None]
  - PARAESTHESIA [None]
  - PARAESTHESIA OF GENITAL FEMALE [None]
  - PERIPHERAL SENSORY NEUROPATHY [None]
  - POLLAKIURIA [None]
  - SEXUAL DYSFUNCTION [None]
  - TREMOR [None]
